FAERS Safety Report 20534965 (Version 1)
Quarter: 2022Q1

REPORT INFORMATION
  Report Type: Spontaneous
  Country: US (occurrence: US)
  Receive Date: 20220302
  Receipt Date: 20220302
  Transmission Date: 20220424
  Serious: Yes (Other)
  Sender: FDA-Public Use
  Company Number: US-ABBVIE-22K-163-4295992-00

PATIENT
  Sex: Male

DRUGS (2)
  1. TESTOSTERONE [Suspect]
     Active Substance: TESTOSTERONE
     Indication: Product used for unknown indication
     Dosage: PUMP
     Route: 061
  2. TESTOSTERONE [Suspect]
     Active Substance: TESTOSTERONE
     Dosage: PUMP
     Route: 061

REACTIONS (11)
  - Erectile dysfunction [Unknown]
  - Breast enlargement [Unknown]
  - Muscle atrophy [Unknown]
  - Dysphonia [Unknown]
  - Skin texture abnormal [Unknown]
  - Hip deformity [Unknown]
  - Muscle swelling [Unknown]
  - Suspected counterfeit product [Unknown]
  - Suspected product tampering [Unknown]
  - Product substitution issue [Unknown]
  - Asthenia [Unknown]
